FAERS Safety Report 23466522 (Version 2)
Quarter: 2024Q1

REPORT INFORMATION
  Report Type: Report from Study
  Country: US (occurrence: US)
  Receive Date: 20240201
  Receipt Date: 20240202
  Transmission Date: 20240410
  Serious: No
  Sender: FDA-Public Use
  Company Number: US-BRISTOL-MYERS SQUIBB COMPANY-2024-016825

PATIENT
  Age: 53 Year
  Sex: Male
  Weight: 83.91 kg

DRUGS (3)
  1. ELIQUIS [Suspect]
     Active Substance: APIXABAN
     Indication: Pulmonary embolism
     Dosage: 10 MG TAKEN TWICE DAILY FOR 7 DAYS
     Route: 048
     Dates: start: 20240129
  2. ELIQUIS [Suspect]
     Active Substance: APIXABAN
  3. TEGRETOL [Concomitant]
     Active Substance: CARBAMAZEPINE
     Indication: Product used for unknown indication

REACTIONS (1)
  - Pruritus [Unknown]
